FAERS Safety Report 21915991 (Version 1)
Quarter: 2023Q1

REPORT INFORMATION
  Report Type: Spontaneous
  Country: US (occurrence: None)
  Receive Date: 20230125
  Receipt Date: 20230125
  Transmission Date: 20230417
  Serious: No
  Sender: FDA-Public Use
  Company Number: None

PATIENT
  Age: 54 Year
  Sex: Female

DRUGS (1)
  1. COSENTYX [Suspect]
     Active Substance: SECUKINUMAB
     Indication: Psoriasis
     Dosage: INJECT 300MG (2 SYRINGES) SUBCUTANEOUSLY ONCE A WEEK FOR 5 WEEKS AS DIRECTED
     Route: 058
     Dates: start: 202206

REACTIONS (3)
  - Cough [None]
  - Multiple allergies [None]
  - Respiratory tract congestion [None]
